FAERS Safety Report 10803406 (Version 1)
Quarter: 2015Q1

REPORT INFORMATION
  Report Type: Spontaneous
  Country: US (occurrence: US)
  Receive Date: 20150217
  Receipt Date: 20150217
  Transmission Date: 20150721
  Serious: Yes (Other)
  Sender: FDA-Public Use
  Company Number: US-RB PHARMACEUTICALS LIMITED-RB-69770-2014

PATIENT

DRUGS (1)
  1. SUBOXONE [Suspect]
     Active Substance: BUPRENORPHINE HYDROCHLORIDE\NALOXONE HYDROCHLORIDE
     Indication: DRUG DEPENDENCE
     Dosage: DOSING DETAILS UNKNOWN
     Route: 042

REACTIONS (7)
  - Malaise [Unknown]
  - Intentional product misuse [Unknown]
  - Substance abuse [Unknown]
  - Fatigue [Unknown]
  - Drug detoxification [Unknown]
  - Wrong technique in drug usage process [Unknown]
  - Drug withdrawal syndrome [Unknown]
